FAERS Safety Report 17021673 (Version 2)
Quarter: 2019Q4

REPORT INFORMATION
  Report Type: Report from Study
  Country: CO (occurrence: CO)
  Receive Date: 20191112
  Receipt Date: 20191224
  Transmission Date: 20200122
  Serious: Yes (Other)
  Sender: FDA-Public Use
  Company Number: NVSC2019CO030545

PATIENT
  Age: 73 Year
  Sex: Male
  Weight: 60 kg

DRUGS (3)
  1. CICLOSPORIN SANDOZ [Suspect]
     Active Substance: CYCLOSPORINE
     Dosage: (50 MG IN THE MORNING AND AT NIGHT ONE TABLET OF 50 MG AND ONE OF 25 MG)
     Route: 065
  2. CICLOSPORIN SANDOZ [Suspect]
     Active Substance: CYCLOSPORINE
     Indication: APLASTIC ANAEMIA
     Dosage: 75 MG, BID (ONE OF 75 MG IN THE MORNING AND ONE OF 75 MG AT NIGHT)
     Route: 065
     Dates: end: 20191118
  3. REVOLADE [Suspect]
     Active Substance: ELTROMBOPAG
     Indication: APLASTIC ANAEMIA
     Dosage: 150 MG, QD (3 OF 50 MG)
     Route: 048
     Dates: start: 201910

REACTIONS (8)
  - Platelet count decreased [Unknown]
  - White blood cell count decreased [Unknown]
  - Therapeutic product effect increased [Unknown]
  - Tachycardia [Unknown]
  - Pain in extremity [Unknown]
  - Cyanosis [Unknown]
  - Haemoglobin decreased [Unknown]
  - Red blood cell count decreased [Unknown]

NARRATIVE: CASE EVENT DATE: 20191012
